FAERS Safety Report 4442076-1 (Version None)
Quarter: 2004Q3

REPORT INFORMATION
  Report Type: 
  Country: None (occurrence: None)
  Receive Date: 20040903
  Receipt Date: 20040614
  Transmission Date: 20050211
  Serious: No
  Sender: FDA-Public Use
  Company Number: 2004UW09348

PATIENT
  Age: 31 Year
  Sex: Female
  Weight: 103.8737 kg

DRUGS (5)
  1. CRESTOR [Suspect]
     Indication: HYPERCHOLESTEROLAEMIA
     Dosage: 10 MG DAILY PO
     Route: 048
     Dates: start: 20040505, end: 20040506
  2. CRESTOR [Suspect]
     Indication: LIPIDS INCREASED
     Dosage: 10 MG DAILY PO
     Route: 048
     Dates: start: 20040505, end: 20040506
  3. DARVOCET-N 100 [Concomitant]
  4. ZOLOFT [Concomitant]
  5. NEXIUM [Concomitant]

REACTIONS (5)
  - DYSPNOEA [None]
  - MUSCULAR WEAKNESS [None]
  - OEDEMA PERIPHERAL [None]
  - SWELLING FACE [None]
  - WEIGHT INCREASED [None]
